FAERS Safety Report 5996408-3 (Version None)
Quarter: 2008Q4

REPORT INFORMATION
  Report Type: 
  Country: None (occurrence: None)
  Receive Date: 20081212
  Receipt Date: 20081017
  Transmission Date: 20090506
  Serious: No
  Sender: FDA-Public Use
  Company Number: US-ABBOTT-08P-163-0482337-00

PATIENT
  Sex: Male

DRUGS (2)
  1. HUMIRA [Suspect]
     Indication: RHEUMATOID ARTHRITIS
     Dosage: LOADING DOSE
     Route: 058
     Dates: start: 20081002, end: 20081002
  2. HUMIRA [Suspect]
     Indication: CROHN'S DISEASE
     Route: 058
     Dates: start: 20081016

REACTIONS (4)
  - HYPOAESTHESIA [None]
  - MALAISE [None]
  - PAIN [None]
  - PARAESTHESIA [None]
